FAERS Safety Report 8873250 (Version 2)
Quarter: 2013Q2

REPORT INFORMATION
  Report Type: Spontaneous
  Country: US (occurrence: US)
  Receive Date: 20121023
  Receipt Date: 20130422
  Transmission Date: 20140414
  Serious: Yes (Hospitalization)
  Sender: FDA-Public Use
  Company Number: US-ASTELLAS-2012US010123

PATIENT
  Age: 76 Year
  Sex: Male

DRUGS (2)
  1. LEXISCAN [Suspect]
     Indication: SCAN MYOCARDIAL PERFUSION
     Dosage: UNK
     Route: 040
     Dates: start: 20120913, end: 20120913
  2. THALLIUM (201 TL) [Concomitant]
     Indication: SCAN MYOCARDIAL PERFUSION
     Dosage: UNK
     Route: 042
     Dates: start: 20120913, end: 20120913

REACTIONS (3)
  - Convulsion [Recovered/Resolved]
  - Atrioventricular block second degree [Recovered/Resolved]
  - Blood pressure decreased [Recovered/Resolved]
